FAERS Safety Report 6071584-5 (Version None)
Quarter: 2009Q1

REPORT INFORMATION
  Report Type: 
  Country: None (occurrence: None)
  Receive Date: 20090210
  Receipt Date: 20090110
  Transmission Date: 20090719
  Serious: No
  Sender: FDA-Public Use
  Company Number: US-BAYER-200911028NA

PATIENT
  Age: 55 Year
  Sex: Female
  Weight: 79 kg

DRUGS (1)
  1. ULTRAVIST 370 [Suspect]
     Indication: ARTERIOGRAM CORONARY
     Dosage: TOTAL DAILY DOSE: 120 ML  UNIT DOSE: 125 ML
     Route: 042
     Dates: start: 20090113, end: 20090113

REACTIONS (1)
  - URTICARIA [None]
